FAERS Safety Report 5970968-0 (Version None)
Quarter: 2008Q4

REPORT INFORMATION
  Report Type: 
  Country: None (occurrence: None)
  Receive Date: 20081128
  Receipt Date: 20081119
  Transmission Date: 20090506
  Serious: Yes (Hospitalization)
  Sender: FDA-Public Use
  Company Number: PHHY2008FR23242

PATIENT
  Sex: Female
  Weight: 90 kg

DRUGS (4)
  1. EXELON [Suspect]
     Indication: DEMENTIA ALZHEIMER'S TYPE
     Dosage: 4.6 MG
     Route: 062
     Dates: start: 20080925, end: 20080926
  2. SERESTA [Concomitant]
     Dosage: 50 MG
  3. CARDENSIEL [Concomitant]
     Dosage: 1 DF, QD
  4. KARDEGIC [Concomitant]
     Dosage: 75 MG, QD

REACTIONS (2)
  - AGGRESSION [None]
  - AGITATION [None]
